FAERS Safety Report 10249385 (Version 1)
Quarter: 2014Q2

REPORT INFORMATION
  Report Type: Report from Study
  Country: GB (occurrence: GB)
  Receive Date: 20140620
  Receipt Date: 20140620
  Transmission Date: 20141212
  Serious: Yes (Death, Hospitalization, Other)
  Sender: FDA-Public Use
  Company Number: GB-ROCHE-1417806

PATIENT
  Sex: 0

DRUGS (6)
  1. RITUXIMAB [Suspect]
     Indication: AUTOIMMUNE DISORDER
     Dosage: 1000 MG REPEATED AFTER TWO WEEKS OR 375 MG/M2/WEEK X 4
     Route: 065
  2. MYCOPHENOLATE MOFETIL [Suspect]
     Indication: AUTOIMMUNE DISORDER
     Route: 065
  3. CYCLOPHOSPHAMIDE [Suspect]
     Indication: AUTOIMMUNE DISORDER
     Route: 065
  4. AZATHIOPRINE [Suspect]
     Indication: AUTOIMMUNE DISORDER
     Route: 065
  5. METHOTREXATE [Suspect]
     Indication: AUTOIMMUNE DISORDER
     Route: 065
  6. HYDROXYCHLOROQUINE [Concomitant]

REACTIONS (11)
  - Peritonitis [Fatal]
  - Sepsis [Fatal]
  - Lower respiratory tract infection [Unknown]
  - Urinary tract infection [Unknown]
  - Diarrhoea [Unknown]
  - Skin infection [Unknown]
  - Bronchopulmonary aspergillosis [Unknown]
  - Herpes zoster [Unknown]
  - Cytomegalovirus infection [Unknown]
  - Mycobacterium avium complex infection [Unknown]
  - Hypogammaglobulinaemia [Unknown]
